FAERS Safety Report 8387601-3 (Version None)
Quarter: 2012Q2

REPORT INFORMATION
  Report Type: 
  Country: None (occurrence: None)
  Receive Date: 20120525
  Receipt Date: 20120521
  Transmission Date: 20120825
  Serious: No
  Sender: FDA-Public Use
  Company Number: US-ASTRAZENECA-2012SE32674

PATIENT
  Sex: Female

DRUGS (3)
  1. SEROQUEL [Suspect]
     Indication: WOUND
     Route: 048
  2. SEROQUEL [Suspect]
     Route: 048
  3. POST NATAL VITAMINS [Concomitant]

REACTIONS (3)
  - FEELING ABNORMAL [None]
  - OFF LABEL USE [None]
  - DRUG DISPENSING ERROR [None]
